FAERS Safety Report 21635095 (Version 1)
Quarter: 2022Q4

REPORT INFORMATION
  Report Type: Spontaneous
  Country: GB (occurrence: GB)
  Receive Date: 20221123
  Receipt Date: 20221123
  Transmission Date: 20230112
  Serious: Yes (Other)
  Sender: FDA-Public Use
  Company Number: None

PATIENT
  Age: 50 Year
  Sex: Female
  Weight: 87 kg

DRUGS (12)
  1. FYCOMPA [Suspect]
     Active Substance: PERAMPANEL
     Indication: Seizure
     Dosage: FREQUENCY UNKNOWN
     Route: 048
     Dates: end: 2022
  2. AMITRIPTYLINE [Concomitant]
     Active Substance: AMITRIPTYLINE
     Indication: Product used for unknown indication
     Dosage: AT NIGHT AS PER SPECIALIST
     Dates: start: 20221014, end: 20221108
  3. CLOBAZAM [Concomitant]
     Active Substance: CLOBAZAM
     Indication: Epilepsy
     Dosage: 1 TABLET DAILY IF NEEDED
     Dates: start: 20220901, end: 20221028
  4. VALPROATE SODIUM [Concomitant]
     Active Substance: VALPROATE SODIUM
     Indication: Product used for unknown indication
     Dosage: TAKE 2 SACHETS (2G) IN THE MORNING AS PER SPECIALIST (INSTEAD OF SODIUM VALPROATE)
     Dates: start: 20221014, end: 20221028
  5. NAPROXEN [Concomitant]
     Active Substance: NAPROXEN
     Indication: Product used for unknown indication
     Dates: start: 20221028
  6. OMEPRAZOLE [Concomitant]
     Active Substance: OMEPRAZOLE
     Indication: Product used for unknown indication
     Dates: start: 20220901, end: 20221028
  7. ALBUTEROL [Concomitant]
     Active Substance: ALBUTEROL
     Indication: Product used for unknown indication
     Dosage: 1 TO 2 PUFFS UP TO 4 TIMES DAILY AS REQUIRED 100 MICROGRAMS/DOSE INHALER
     Route: 055
     Dates: start: 20221028
  8. ALBUTEROL [Concomitant]
     Active Substance: ALBUTEROL
     Indication: Product used for unknown indication
     Dosage: 1 TO 2 PUFFS UP TO 4 TIMES DAILY AS REQUIRED, 100 MICROGRAMS/DOSE INHALER
     Route: 055
     Dates: start: 20220901, end: 20221028
  9. SERTRALINE [Concomitant]
     Active Substance: SERTRALINE HYDROCHLORIDE
     Indication: Product used for unknown indication
     Dosage: 50 MG AND 100 MG
     Dates: start: 20221028
  10. VALPROATE SODIUM [Concomitant]
     Active Substance: VALPROATE SODIUM
     Indication: Product used for unknown indication
     Dosage: AS PER NEUROLOGY
     Dates: start: 20220901, end: 20221014
  11. TRELEGY ELLIPTA [Concomitant]
     Active Substance: FLUTICASONE FUROATE\UMECLIDINIUM BROMIDE\VILANTEROL TRIFENATATE
     Indication: Product used for unknown indication
     Dosage: 1 INHALATION
     Route: 055
     Dates: start: 20220901, end: 20221028
  12. ZOPICLONE [Concomitant]
     Active Substance: ZOPICLONE
     Indication: Product used for unknown indication
     Dosage: ONE AT NIGHT WHEN REQUIRED
     Dates: start: 20221028

REACTIONS (2)
  - Incontinence [Unknown]
  - Dizziness [Unknown]

NARRATIVE: CASE EVENT DATE: 20220101
